FAERS Safety Report 5597405-2 (Version None)
Quarter: 2007Q4

REPORT INFORMATION
  Report Type: 
  Country: None (occurrence: None)
  Receive Date: 20071221
  Receipt Date: 20070831
  Transmission Date: 20080405
  Serious: No
  Sender: FDA-Public Use
  Company Number: SPV1-2007-04009

PATIENT
  Age: 12 Year
  Sex: Male
  Weight: 31.7 kg

DRUGS (3)
  1. VYVANSE [Suspect]
     Indication: ATTENTION DEFICIT/HYPERACTIVITY DISORDER
     Dosage: 100 MG, 1X/DAY:QD, ORAL ; 70 MG, 1X/DAY:QD, ORAL ; 100 MG, 1X/DAY:QD, ORAL
     Route: 048
     Dates: start: 20070801, end: 20070801
  2. VYVANSE [Suspect]
     Indication: ATTENTION DEFICIT/HYPERACTIVITY DISORDER
     Dosage: 100 MG, 1X/DAY:QD, ORAL ; 70 MG, 1X/DAY:QD, ORAL ; 100 MG, 1X/DAY:QD, ORAL
     Route: 048
     Dates: start: 20070801, end: 20070801
  3. VYVANSE [Suspect]
     Indication: ATTENTION DEFICIT/HYPERACTIVITY DISORDER
     Dosage: 100 MG, 1X/DAY:QD, ORAL ; 70 MG, 1X/DAY:QD, ORAL ; 100 MG, 1X/DAY:QD, ORAL
     Route: 048
     Dates: start: 20070801

REACTIONS (4)
  - DEHYDRATION [None]
  - DRUG INEFFECTIVE [None]
  - DYSPNOEA EXERTIONAL [None]
  - OVERDOSE [None]
